FAERS Safety Report 9129565 (Version 1)
Quarter: 2013Q1

REPORT INFORMATION
  Report Type: Spontaneous
  Country: NO (occurrence: NO)
  Receive Date: 20130228
  Receipt Date: 20130228
  Transmission Date: 20140127
  Serious: Yes (Other)
  Sender: FDA-Public Use
  Company Number: NO-ROCHE-1194319

PATIENT
  Sex: Female

DRUGS (4)
  1. TRASTUZUMAB [Suspect]
     Indication: BREAST CANCER
     Dosage: TOTAL 17 CYCLES
     Route: 065
     Dates: start: 201201
  2. EPIRUBICIN [Concomitant]
     Indication: BREAST CANCER
     Route: 065
     Dates: start: 2011
  3. FLUOROURACIL [Concomitant]
     Indication: BREAST CANCER
     Route: 065
     Dates: start: 2011
  4. SENDOXAN [Concomitant]
     Indication: BREAST CANCER
     Route: 065
     Dates: start: 2011

REACTIONS (1)
  - Deafness bilateral [Not Recovered/Not Resolved]
